FAERS Safety Report 8793222 (Version 1)
Quarter: 2012Q4

REPORT INFORMATION
  Report Type: 
  Country: US (occurrence: US)
  Receive Date: 20120917
  Receipt Date: 20120917
  Transmission Date: 20130627
  Serious: No
  Sender: FDA-Public Use
  Company Number: US-ASTRAZENECA-2012SE69937

PATIENT
  Age: 57 Year
  Sex: Female

DRUGS (2)
  1. SEROQUEL [Suspect]
     Route: 048
  2. SEROQUEL [Suspect]
     Route: 048

REACTIONS (7)
  - Nausea [Unknown]
  - Insomnia [Unknown]
  - Feeling abnormal [Unknown]
  - Malaise [Unknown]
  - Social avoidant behaviour [Unknown]
  - Vomiting [Unknown]
  - Intentional drug misuse [Unknown]
